FAERS Safety Report 11332506 (Version 1)
Quarter: 2015Q3

REPORT INFORMATION
  Report Type: Spontaneous
  Country: US (occurrence: US)
  Receive Date: 20150803
  Receipt Date: 20150803
  Transmission Date: 20151125
  Serious: No
  Sender: FDA-Public Use
  Company Number: US-ELI_LILLY_AND_COMPANY-US200810005543

PATIENT
  Age: 45 Year
  Sex: Female

DRUGS (3)
  1. ABILIFY [Concomitant]
     Active Substance: ARIPIPRAZOLE
  2. LIDODERM [Concomitant]
     Active Substance: LIDOCAINE
  3. ZYPREXA [Suspect]
     Active Substance: OLANZAPINE

REACTIONS (6)
  - Adverse reaction [Unknown]
  - Weight increased [Unknown]
  - Thirst [Unknown]
  - Feeling abnormal [Recovered/Resolved]
  - Compulsive shopping [Unknown]
  - Palpitations [Unknown]
